FAERS Safety Report 9155784 (Version 1)
Quarter: 2013Q1

REPORT INFORMATION
  Report Type: Spontaneous
  Country: FR (occurrence: FR)
  Receive Date: 20130311
  Receipt Date: 20130311
  Transmission Date: 20140127
  Serious: Yes (Disabling)
  Sender: FDA-Public Use
  Company Number: FR-ABBOTT-13P-056-1061030-00

PATIENT
  Age: 50 Year
  Sex: Female

DRUGS (5)
  1. PROGESTERONE [Suspect]
     Indication: POSTMENOPAUSE
     Route: 048
     Dates: end: 20090325
  2. PROGESTERONE [Suspect]
     Indication: HORMONE THERAPY
  3. ESTREVA [Suspect]
     Indication: POSTMENOPAUSE
     Route: 048
     Dates: end: 20090325
  4. ESTREVA [Suspect]
     Indication: HORMONE THERAPY
  5. PREVISCON (FLUINDIONE) [Concomitant]
     Indication: PRODUCT USED FOR UNKNOWN INDICATION

REACTIONS (5)
  - Palpitations [Recovered/Resolved]
  - Deep vein thrombosis [Recovered/Resolved]
  - Pulmonary embolism [Recovered/Resolved]
  - Pain in extremity [Recovered/Resolved]
  - Dyspnoea exertional [Recovered/Resolved]
